FAERS Safety Report 5933063-2 (Version None)
Quarter: 2008Q4

REPORT INFORMATION
  Report Type: 
  Country: None (occurrence: None)
  Receive Date: 20081028
  Receipt Date: 20081024
  Transmission Date: 20090506
  Serious: Yes (Hospitalization)
  Sender: FDA-Public Use
  Company Number: US-BRISTOL-MYERS SQUIBB COMPANY-14382188

PATIENT
  Age: 65 Year
  Sex: Female
  Weight: 64 kg

DRUGS (4)
  1. ERBITUX [Suspect]
     Indication: ANAL CANCER
     Dosage: START DATE:25AUG08
     Dates: start: 20081013, end: 20081013
  2. CISPLATIN [Suspect]
     Indication: ANAL CANCER
     Dosage: START DATE:30JUN08
     Dates: start: 20081013, end: 20081013
  3. FLUOROURACIL [Suspect]
     Indication: ANAL CANCER
     Dosage: START DATE:30JUN08
     Dates: start: 20081017, end: 20081017
  4. RADIATION THERAPY [Suspect]
     Indication: ANAL CANCER
     Dosage: DF=GY;NO OF FRAC:25;NO OF ELAPSED DAYS:60
     Dates: end: 20081017

REACTIONS (3)
  - DEHYDRATION [None]
  - DIARRHOEA [None]
  - ULCER [None]
